FAERS Safety Report 7915476-2 (Version None)
Quarter: 2011Q4

REPORT INFORMATION
  Report Type: 
  Country: None (occurrence: None)
  Receive Date: 20111115
  Receipt Date: 20111107
  Transmission Date: 20120403
  Serious: Yes (Other)
  Sender: FDA-Public Use
  Company Number: US-US-EMD SERONO, INC.-7094717

PATIENT
  Sex: Male

DRUGS (2)
  1. REBIF [Suspect]
     Indication: MULTIPLE SCLEROSIS
     Route: 058
     Dates: start: 20101129
  2. REBIF [Suspect]
     Route: 058
     Dates: start: 20111107

REACTIONS (6)
  - NAIL INJURY [None]
  - ORBITAL OEDEMA [None]
  - DRUG ADMINISTRATION ERROR [None]
  - EXCORIATION [None]
  - CHEMICAL INJURY [None]
  - FALL [None]
